FAERS Safety Report 17835081 (Version 1)
Quarter: 2020Q2

REPORT INFORMATION
  Report Type: Spontaneous
  Country: CA (occurrence: CA)
  Receive Date: 20200528
  Receipt Date: 20200528
  Transmission Date: 20200714
  Serious: Yes (Other)
  Sender: FDA-Public Use
  Company Number: CA-ROCHE-2606122

PATIENT
  Age: 38 Year
  Sex: Female

DRUGS (30)
  1. GRAVOL [Concomitant]
     Active Substance: DIMENHYDRINATE
  2. HYDROMORPH CONTIN [Concomitant]
     Active Substance: HYDROMORPHONE
  3. NABILONE [Concomitant]
     Active Substance: NABILONE
  4. ANAFRANIL [Concomitant]
     Active Substance: CLOMIPRAMINE HYDROCHLORIDE
     Route: 065
  5. ETHINYLESTRADIOL;NORETHISTERONE [Concomitant]
  6. ESOMEPRAZOLE. [Concomitant]
     Active Substance: ESOMEPRAZOLE MAGNESIUM
  7. PEPTO-BISMOL [Concomitant]
     Active Substance: BISMUTH SUBSALICYLATE
  8. TYLENOL WITH CODEINE [Concomitant]
     Active Substance: ACETAMINOPHEN\CODEINE PHOSPHATE
  9. ARAVA [Concomitant]
     Active Substance: LEFLUNOMIDE
  10. REMERON [Concomitant]
     Active Substance: MIRTAZAPINE
  11. RITUXAN [Suspect]
     Active Substance: RITUXIMAB
     Indication: RHEUMATOID ARTHRITIS
     Route: 042
  12. ACTEMRA [Suspect]
     Active Substance: TOCILIZUMAB
     Indication: RHEUMATOID ARTHRITIS
     Route: 042
  13. CYMBALTA [Concomitant]
     Active Substance: DULOXETINE HYDROCHLORIDE
  14. XELJANZ [Concomitant]
     Active Substance: TOFACITINIB CITRATE
  15. ENBREL [Suspect]
     Active Substance: ETANERCEPT
     Indication: PRODUCT USED FOR UNKNOWN INDICATION
     Route: 065
  16. BENADRYL [Concomitant]
     Active Substance: DIPHENHYDRAMINE HYDROCHLORIDE
  17. HUMIRA [Concomitant]
     Active Substance: ADALIMUMAB
     Route: 065
  18. KETAMINE [Concomitant]
     Active Substance: KETAMINE
  19. ORENCIA [Suspect]
     Active Substance: ABATACEPT
     Indication: PRODUCT USED FOR UNKNOWN INDICATION
     Route: 065
  20. CODEINE PHOSPHATE [Concomitant]
     Active Substance: CODEINE PHOSPHATE
  21. LIDOCAINE. [Concomitant]
     Active Substance: LIDOCAINE
     Route: 065
  22. NORVASC [Concomitant]
     Active Substance: AMLODIPINE BESYLATE
  23. RITUXAN [Suspect]
     Active Substance: RITUXIMAB
     Indication: PRODUCT USED FOR UNKNOWN INDICATION
     Route: 042
  24. CELEBREX [Concomitant]
     Active Substance: CELECOXIB
  25. CLONIDINE. [Concomitant]
     Active Substance: CLONIDINE
  26. DIPHENHYDRAMINE. [Concomitant]
     Active Substance: DIPHENHYDRAMINE
  27. ESOMEPRAZOLE. [Concomitant]
     Active Substance: ESOMEPRAZOLE MAGNESIUM
  28. TRAZODONE [Concomitant]
     Active Substance: TRAZODONE HYDROCHLORIDE
  29. ALIGN [Concomitant]
     Active Substance: BIFIDOBACTERIUM LONGUM SUBSP. INFANTIS
  30. TYLENOL [Concomitant]
     Active Substance: ACETAMINOPHEN

REACTIONS (18)
  - Diarrhoea [Recovered/Resolved]
  - Gastrointestinal inflammation [Recovered/Resolved]
  - Sleep disorder [Recovered/Resolved]
  - Blood pressure systolic abnormal [Recovered/Resolved]
  - Heart rate increased [Recovered/Resolved]
  - Tongue pruritus [Recovered/Resolved]
  - Tachycardia [Recovered/Resolved]
  - Mood altered [Recovered/Resolved]
  - Arthralgia [Recovered/Resolved]
  - Blood pressure systolic increased [Recovered/Resolved]
  - Flushing [Recovered/Resolved]
  - Pain [Recovered/Resolved]
  - Pruritus [Recovered/Resolved]
  - Throat irritation [Recovered/Resolved]
  - Off label use [Unknown]
  - Blood pressure fluctuation [Recovered/Resolved]
  - Infusion related reaction [Recovered/Resolved]
  - Injection site reaction [Recovered/Resolved]
